FAERS Safety Report 17656422 (Version 3)
Quarter: 2020Q4

REPORT INFORMATION
  Report Type: Spontaneous
  Country: JP (occurrence: JP)
  Receive Date: 20200410
  Receipt Date: 20201228
  Transmission Date: 20210113
  Serious: Yes (Hospitalization, Other)
  Sender: FDA-Public Use
  Company Number: JP-UCBSA-2020015303

PATIENT
  Age: 26 Year
  Sex: Female

DRUGS (3)
  1. FEXOFENADINE HYDROCHLORIDE. [Concomitant]
     Active Substance: FEXOFENADINE HYDROCHLORIDE
     Indication: URTICARIA
     Dosage: 120 MG, PRN
     Dates: start: 2019
  2. RESTAMIN KOWA [Concomitant]
     Indication: PRODUCT USED FOR UNKNOWN INDICATION
     Dosage: UNK
     Dates: start: 20200309
  3. XYZAL [Suspect]
     Active Substance: LEVOCETIRIZINE DIHYDROCHLORIDE
     Indication: URTICARIA
     Dosage: 5 MG, 1D
     Route: 048
     Dates: start: 20200309, end: 20200320

REACTIONS (6)
  - Hepatic enzyme increased [Unknown]
  - Decreased appetite [Unknown]
  - Therapy cessation [Unknown]
  - Bile duct cancer [Not Recovered/Not Resolved]
  - Taste disorder [Unknown]
  - Jaundice [Unknown]

NARRATIVE: CASE EVENT DATE: 2020
